FAERS Safety Report 5084456-X (Version None)
Quarter: 2006Q3

REPORT INFORMATION
  Report Type: 
  Country: None (occurrence: None)
  Receive Date: 20060821
  Receipt Date: 20060810
  Transmission Date: 20061208
  Serious: Yes (Life-Threatening)
  Sender: FDA-Public Use
  Company Number: ES-AMGEN-UK189828

PATIENT
  Age: 57 Year
  Sex: Female

DRUGS (3)
  1. NEUPOGEN [Suspect]
     Indication: AGRANULOCYTOSIS
     Route: 065
     Dates: start: 20060424, end: 20060429
  2. CYCLOPHOSPHAMIDE [Concomitant]
  3. FLUDARABINE [Concomitant]

REACTIONS (1)
  - ISCHAEMIC STROKE [None]
